FAERS Safety Report 9896917 (Version 6)
Quarter: 2014Q2

REPORT INFORMATION
  Report Type: Report from Study
  Country: CA (occurrence: CA)
  Receive Date: 20140214
  Receipt Date: 20140509
  Transmission Date: 20141212
  Serious: Yes (Hospitalization, Other)
  Sender: FDA-Public Use
  Company Number: CA-ROCHE-1272113

PATIENT
  Age: 50 Year
  Sex: Female

DRUGS (13)
  1. PERJETA [Suspect]
     Indication: BREAST CANCER METASTATIC
     Route: 042
     Dates: start: 20130730, end: 20140128
  2. HERCEPTIN [Suspect]
     Indication: BREAST CANCER METASTATIC
     Route: 042
     Dates: start: 201207
  3. KADCYLA [Suspect]
     Indication: BREAST CANCER METASTATIC
     Route: 042
     Dates: start: 20140304
  4. KADCYLA [Suspect]
     Route: 042
     Dates: start: 20131203, end: 20140325
  5. TAXOTERE [Suspect]
     Indication: BREAST CANCER METASTATIC
     Route: 065
  6. VINORELBINE [Suspect]
     Indication: BREAST CANCER
     Route: 042
     Dates: start: 201205
  7. TAXOL [Concomitant]
     Route: 065
     Dates: start: 201307, end: 201310
  8. SYNTHROID [Concomitant]
  9. LIPITOR [Concomitant]
  10. COVERSYL [Concomitant]
  11. BISOPROLOL [Concomitant]
  12. FASLODEX [Concomitant]
  13. FEMARA [Concomitant]

REACTIONS (11)
  - Hepatic pain [Unknown]
  - Ejection fraction decreased [Not Recovered/Not Resolved]
  - Localised infection [Recovered/Resolved]
  - Diarrhoea [Recovering/Resolving]
  - Fatigue [Not Recovered/Not Resolved]
  - Dysgeusia [Not Recovered/Not Resolved]
  - Metastases to central nervous system [Not Recovered/Not Resolved]
  - Disease progression [Not Recovered/Not Resolved]
  - Nausea [Recovering/Resolving]
  - Vomiting [Recovering/Resolving]
  - Dehydration [Unknown]
